FAERS Safety Report 17370264 (Version 2)
Quarter: 2020Q1

REPORT INFORMATION
  Report Type: Spontaneous
  Country: PL (occurrence: PL)
  Receive Date: 20200205
  Receipt Date: 20200304
  Transmission Date: 20200409
  Serious: Yes (Life-Threatening, Hospitalization)
  Sender: FDA-Public Use
  Company Number: PL-PFIZER INC-2020047290

PATIENT
  Age: 63 Year
  Sex: Female

DRUGS (3)
  1. CARBOPLATIN. [Suspect]
     Active Substance: CARBOPLATIN
     Indication: NON-SMALL CELL LUNG CANCER STAGE IIIB
     Dosage: 5 OR 6 AUC, EVERY 3 WEEKS
     Route: 042
     Dates: start: 20191218, end: 20191218
  2. PACLITAXEL. [Suspect]
     Active Substance: PACLITAXEL
     Indication: NON-SMALL CELL LUNG CANCER STAGE IIIB
     Dosage: 200 MG/M2, EVERY 3 WEEKS
     Route: 042
     Dates: start: 20191218, end: 20191218
  3. BLINDED THERAPY [Suspect]
     Active Substance: INVESTIGATIONAL PRODUCT
     Indication: NON-SMALL CELL LUNG CANCER STAGE IIIB
     Dosage: 350 MG, EVERY 3 WEEKS
     Route: 042
     Dates: start: 20191218, end: 20191218

REACTIONS (1)
  - Hypersensitivity [Recovered/Resolved]

NARRATIVE: CASE EVENT DATE: 20200107
